FAERS Safety Report 19514260 (Version 2)
Quarter: 2021Q4

REPORT INFORMATION
  Report Type: Other
  Country: GB (occurrence: GB)
  Receive Date: 20210710
  Receipt Date: 20211109
  Transmission Date: 20220304
  Serious: Yes (Death, Other)
  Sender: FDA-Public Use
  Company Number: GB-CELLTRION INC.-2021GB009280

PATIENT

DRUGS (2)
  1. RITUXIMAB [Suspect]
     Active Substance: RITUXIMAB
     Indication: Product used for unknown indication
     Dosage: UNK
     Route: 065
     Dates: start: 201811
  2. RUXOLITINIB [Suspect]
     Active Substance: RUXOLITINIB
     Indication: Product used for unknown indication
     Dosage: 10 MG, QD(5 MG, BID)
     Route: 065
     Dates: start: 201901

REACTIONS (11)
  - Death [Fatal]
  - Blast cell count increased [Fatal]
  - Haemoglobin abnormal [Fatal]
  - Liver function test abnormal [Fatal]
  - Mouth ulceration [Fatal]
  - Splenomegaly [Fatal]
  - Weight decreased [Fatal]
  - Pruritus [Fatal]
  - Lower respiratory tract infection [Fatal]
  - Urinary tract infection [Fatal]
  - Herpes zoster [Fatal]

NARRATIVE: CASE EVENT DATE: 20181101
